FAERS Safety Report 8204259-4 (Version None)
Quarter: 2012Q1

REPORT INFORMATION
  Report Type: 
  Country: None (occurrence: None)
  Receive Date: 20120313
  Receipt Date: 20120305
  Transmission Date: 20120608
  Serious: Yes (Hospitalization, Other)
  Sender: FDA-Public Use
  Company Number: US-UCBSA-051099

PATIENT
  Age: 68 Year
  Sex: Female
  Weight: 49.9 kg

DRUGS (5)
  1. CIMZIA [Suspect]
     Route: 058
  2. CIMZIA [Suspect]
     Indication: CROHN'S DISEASE
     Route: 058
     Dates: start: 20081106
  3. IMURAN [Concomitant]
     Indication: INFLAMMATORY BOWEL DISEASE
  4. THYROID TAB [Concomitant]
     Indication: HYPERTHYROIDISM
     Dosage: DAILY 30
  5. HORMAL THERAPY-BIO NATURAL CREAM [Concomitant]
     Indication: OSTEOPENIA
     Dosage: DAILY
     Route: 061

REACTIONS (9)
  - FEELING ABNORMAL [None]
  - HYPOAESTHESIA [None]
  - FEELING HOT [None]
  - AORTIC VALVE SCLEROSIS [None]
  - SKIN TIGHTNESS [None]
  - INTESTINAL PERFORATION [None]
  - DYSPNOEA [None]
  - GASTROINTESTINAL INFECTION [None]
  - PARAESTHESIA [None]
